FAERS Safety Report 4602220-X (Version None)
Quarter: 2005Q2

REPORT INFORMATION
  Report Type: 
  Country: None (occurrence: None)
  Receive Date: 20050215
  Receipt Date: 20050907
  Transmission Date: 20051028
  Serious: Yes (Death)
  Sender: FDA-Public Use
  Company Number: 2004IM000845

PATIENT
  Age: 75 Year
  Sex: Female

DRUGS (2)
  1. ACTIMMUNE [Suspect]
     Indication: PULMONARY FIBROSIS
     Dosage: 100 UG; TIW; INTRAMUSCULAR
     Route: 030
     Dates: start: 20021101, end: 20030101
  2. TRACLEER [Concomitant]

REACTIONS (2)
  - ASTHENIA [None]
  - DYSPNOEA EXACERBATED [None]
